FAERS Safety Report 4643487-1 (Version None)
Quarter: 2005Q2

REPORT INFORMATION
  Report Type: 
  Country: None (occurrence: None)
  Receive Date: 20050328
  Receipt Date: 20040623
  Transmission Date: 20051028
  Serious: Yes (Other)
  Sender: FDA-Public Use
  Company Number: PHEH2004US04664

PATIENT
  Age: 47 Year
  Sex: Female

DRUGS (3)
  1. VIVELLE-DOT [Suspect]
     Indication: HORMONE REPLACEMENT THERAPY
     Dosage: 0.05 MG, TWICE WEEKLY, TRANSDERMAL
     Route: 062
     Dates: start: 20040225, end: 20040421
  2. VIVELLE-DOT [Suspect]
     Dosage: 0.025 MG, TWICE WEEKLY, TRANSDERMAL
     Route: 062
     Dates: start: 20040422
  3. VITAMINS (NO INGREDIENTS/SUBSTANCES) [Concomitant]

REACTIONS (3)
  - BLOOD PRESSURE INCREASED [None]
  - HEART RATE INCREASED [None]
  - HOT FLUSH [None]
